FAERS Safety Report 20079790 (Version 1)
Quarter: 2021Q4

REPORT INFORMATION
  Report Type: Spontaneous
  Country: FR (occurrence: FR)
  Receive Date: 20211117
  Receipt Date: 20211117
  Transmission Date: 20220303
  Serious: Yes (Death, Congenital Anomaly, Other)
  Sender: FDA-Public Use
  Company Number: FR-ABBVIE-21K-056-4164286-00

PATIENT
  Sex: Female
  Weight: 1.498 kg

DRUGS (1)
  1. VALPROATE SODIUM [Suspect]
     Active Substance: VALPROATE SODIUM
     Indication: Maternal exposure timing unspecified
     Route: 064

REACTIONS (7)
  - Congenital central nervous system anomaly [Fatal]
  - Cerebral ventricle dilatation [Fatal]
  - Arnold-Chiari malformation [Fatal]
  - Microcephaly [Fatal]
  - Spina bifida [Fatal]
  - Neural tube defect [Fatal]
  - Foetal exposure during pregnancy [Unknown]
